FAERS Safety Report 15218366 (Version 1)
Quarter: 2018Q3

REPORT INFORMATION
  Report Type: Spontaneous
  Country: AU (occurrence: AU)
  Receive Date: 20180730
  Receipt Date: 20180730
  Transmission Date: 20181010
  Serious: Yes (Death)
  Sender: FDA-Public Use
  Company Number: AU-AMGEN-AUSNI2018095403

PATIENT
  Sex: Female

DRUGS (2)
  1. GEFITINIB. [Concomitant]
     Active Substance: GEFITINIB
     Dosage: UNK
  2. XGEVA [Suspect]
     Active Substance: DENOSUMAB
     Indication: METASTASES TO BONE
     Dosage: 120 MG (1.7 ML), Q4WK
     Route: 065

REACTIONS (1)
  - Disease progression [Fatal]
